FAERS Safety Report 7472625-0 (Version None)
Quarter: 2011Q2

REPORT INFORMATION
  Report Type: 
  Country: None (occurrence: None)
  Receive Date: 20110511
  Receipt Date: 20110506
  Transmission Date: 20111010
  Serious: Yes (Hospitalization)
  Sender: FDA-Public Use
  Company Number: GB-BRISTOL-MYERS SQUIBB COMPANY-15722937

PATIENT
  Age: 70 Year
  Sex: Female

DRUGS (5)
  1. ASPIRIN [Concomitant]
     Dosage: TAKEN FOR OVER 3 MONTHS
     Route: 048
  2. ADCAL-D3 [Concomitant]
     Dosage: TAKEN FOR OVER 3 MONTHS
     Route: 048
  3. SIMVASTATIN [Concomitant]
     Dosage: AT NIGHT,TAKEN FOR OVER 3 MONTHS
     Route: 048
  4. HYDROXYUREA [Suspect]
     Route: 048
     Dates: start: 20100512, end: 20100526
  5. OMEPRAZOLE [Concomitant]
     Dosage: TAKEN FOR OVER 3 MONTHS
     Route: 048

REACTIONS (4)
  - MALAISE [None]
  - HYPERTENSION [None]
  - ABDOMINAL PAIN UPPER [None]
  - DIZZINESS [None]
